FAERS Safety Report 6775643-0 (Version None)
Quarter: 2010Q2

REPORT INFORMATION
  Report Type: 
  Country: None (occurrence: None)
  Receive Date: 20100617
  Receipt Date: 20100609
  Transmission Date: 20101027
  Serious: Yes (Hospitalization)
  Sender: FDA-Public Use
  Company Number: JP-BAXTER-2010BH016097

PATIENT
  Age: 47 Year
  Sex: Female

DRUGS (4)
  1. ENDOXAN BAXTER [Suspect]
     Indication: MIXED CONNECTIVE TISSUE DISEASE
     Route: 048
     Dates: start: 20020501, end: 20071109
  2. METHYLPREDNISOLONE [Suspect]
     Indication: MIXED CONNECTIVE TISSUE DISEASE
     Route: 065
     Dates: start: 20020501, end: 20071108
  3. METHYLPREDNISOLONE [Suspect]
     Route: 065
     Dates: start: 20071109
  4. METHYLPREDNISOLONE ACETATE [Suspect]
     Indication: RETINAL VASCULITIS
     Route: 065
     Dates: start: 20070927

REACTIONS (1)
  - CYTOMEGALOVIRUS CHORIORETINITIS [None]
